FAERS Safety Report 12327882 (Version 3)
Quarter: 2016Q2

REPORT INFORMATION
  Report Type: Spontaneous
  Country: US (occurrence: US)
  Receive Date: 20160503
  Receipt Date: 20160620
  Transmission Date: 20160815
  Serious: Yes (Other)
  Sender: FDA-Public Use
  Company Number: US-SMITH AND NEPHEW, INC-2016SMT00356

PATIENT
  Age: 59 Year
  Sex: Male

DRUGS (1)
  1. REGRANEX [Suspect]
     Active Substance: BECAPLERMIN
     Indication: WOUND

REACTIONS (4)
  - Cardiovascular insufficiency [Unknown]
  - Venous operation [Unknown]
  - Dialysis [Unknown]
  - Skin cancer [Unknown]

NARRATIVE: CASE EVENT DATE: 20160420
